FAERS Safety Report 11717424 (Version 4)
Quarter: 2015Q4

REPORT INFORMATION
  Report Type: Spontaneous
  Country: DK (occurrence: DK)
  Receive Date: 20151110
  Receipt Date: 20151118
  Transmission Date: 20160304
  Serious: Yes (Death, Hospitalization)
  Sender: FDA-Public Use
  Company Number: DK-ROCHE-1657599

PATIENT
  Age: 70 Year
  Sex: Male

DRUGS (1)
  1. CAPECITABINE. [Suspect]
     Active Substance: CAPECITABINE
     Indication: ADJUVANT THERAPY
     Dosage: 14 DAYS OF TREATMENT FOLLOWED BY ONE WEEK^S PAUSE. 13/OCT//2015, TREATMENT AGAIN STARTED.
     Route: 065
     Dates: start: 20150907

REACTIONS (5)
  - Embolism [Fatal]
  - Wound [Fatal]
  - Skin exfoliation [Fatal]
  - Blood creatinine increased [Fatal]
  - Diarrhoea [Fatal]

NARRATIVE: CASE EVENT DATE: 20151013
